APPROVED DRUG PRODUCT: SODIUM CHLORIDE 0.9% IN PLASTIC CONTAINER
Active Ingredient: SODIUM CHLORIDE
Strength: 900MG/100ML
Dosage Form/Route: INJECTABLE;INJECTION
Application: A207956 | Product #001 | TE Code: AP
Applicant: LABORATORIOS GRIFOLS SA
Approved: May 25, 2017 | RLD: No | RS: No | Type: RX